FAERS Safety Report 19114342 (Version 2)
Quarter: 2022Q2

REPORT INFORMATION
  Report Type: Spontaneous
  Country: US (occurrence: US)
  Receive Date: 20210409
  Receipt Date: 20220415
  Transmission Date: 20220721
  Serious: Yes (Hospitalization, Other)
  Sender: FDA-Public Use
  Company Number: US-ALLERGAN-2107828US

PATIENT
  Age: 42 Year
  Sex: Female
  Weight: 69.388 kg

DRUGS (1)
  1. LILETTA [Suspect]
     Active Substance: LEVONORGESTREL
     Indication: Contraception
     Dosage: 52 MG, SINGLE
     Route: 015

REACTIONS (2)
  - Uterine perforation [Unknown]
  - Product complaint [Unknown]

NARRATIVE: CASE EVENT DATE: 20201106
